FAERS Safety Report 8053099-8 (Version None)
Quarter: 2012Q1

REPORT INFORMATION
  Report Type: 
  Country: None (occurrence: None)
  Receive Date: 20120112
  Receipt Date: 20120105
  Transmission Date: 20120608
  Serious: Yes (Other)
  Sender: FDA-Public Use
  Company Number: AUR-APL-2011-05969

PATIENT
  Age: 68 Year
  Sex: Male

DRUGS (2)
  1. METHYLENE BLUE (METHYLTHIONINIUM CHLORIDE) [Suspect]
     Indication: VASOPLEGIA SYNDROME
     Dosage: INTRAVENOUS
     Route: 042
  2. SERTRALINE HYDROCHLORIDE [Suspect]
     Indication: PRODUCT USED FOR UNKNOWN INDICATION

REACTIONS (2)
  - DRUG INTERACTION [None]
  - TOXICITY TO VARIOUS AGENTS [None]
